FAERS Safety Report 10204329 (Version 1)
Quarter: 2014Q2

REPORT INFORMATION
  Report Type: Report from Study
  Country: BR (occurrence: BR)
  Receive Date: 20140529
  Receipt Date: 20140529
  Transmission Date: 20141212
  Serious: Yes (Other)
  Sender: FDA-Public Use
  Company Number: BR-ABBVIE-14P-020-1240336-00

PATIENT
  Age: 23 Year
  Sex: Female
  Weight: 47 kg

DRUGS (2)
  1. HUMIRA [Suspect]
     Indication: PSORIATIC ARTHROPATHY
     Route: 058
     Dates: start: 201401
  2. CLOBETAZOL + GRAPE OIL (MANIPULATED) [Concomitant]
     Indication: PSORIASIS
     Route: 061
     Dates: start: 20140301

REACTIONS (4)
  - Placenta praevia [Not Recovered/Not Resolved]
  - Macule [Not Recovered/Not Resolved]
  - Headache [Recovered/Resolved]
  - Drug ineffective [Unknown]
